FAERS Safety Report 21381147 (Version 1)
Quarter: 2022Q3

REPORT INFORMATION
  Report Type: Spontaneous
  Country: US (occurrence: US)
  Receive Date: 20220927
  Receipt Date: 20220927
  Transmission Date: 20221026
  Serious: Yes (Hospitalization, Other)
  Sender: FDA-Public Use
  Company Number: US-MORPHOSYS US-2022-MOR002324-US

PATIENT
  Age: 68 Year
  Sex: Female

DRUGS (1)
  1. MONJUVI [Suspect]
     Active Substance: TAFASITAMAB-CXIX
     Indication: Product used for unknown indication
     Dosage: 1000 MILLIGRAM ON DAY 1, 4, 8, 15, 22 EVERY 28 DAYS
     Dates: start: 20210823, end: 20211004

REACTIONS (6)
  - Diarrhoea [Unknown]
  - Vomiting [Unknown]
  - Abdominal pain [Unknown]
  - Mental status changes [Unknown]
  - Pyrexia [Unknown]
  - Pancytopenia [Unknown]

NARRATIVE: CASE EVENT DATE: 20210922
